FAERS Safety Report 8984242 (Version 25)
Quarter: 2016Q4

REPORT INFORMATION
  Report Type: Report from Study
  Country: CA (occurrence: CA)
  Receive Date: 20121226
  Receipt Date: 20161020
  Transmission Date: 20170207
  Serious: Yes (Other)
  Sender: FDA-Public Use
  Company Number: PHHY2010CA22399

PATIENT
  Age: 49 Year
  Sex: Female

DRUGS (16)
  1. ZOMETA [Suspect]
     Active Substance: ZOLEDRONIC ACID
     Dosage: 4 MG, EVERY 16 WEEKS
     Route: 065
     Dates: start: 20141231
  2. ZOMETA [Suspect]
     Active Substance: ZOLEDRONIC ACID
     Indication: BREAST CANCER METASTATIC
     Dosage: 4 MG, EVERY 8 WEEKS
     Route: 042
     Dates: start: 20100316
  3. ZOMETA [Suspect]
     Active Substance: ZOLEDRONIC ACID
     Dosage: 4 MG, EVERY 3 MONTHS
     Route: 042
  4. ZOMETA [Suspect]
     Active Substance: ZOLEDRONIC ACID
     Dosage: 4 MG, EVERY 16 WEEKS
     Route: 042
  5. AFINITOR [Suspect]
     Active Substance: EVEROLIMUS
     Indication: BREAST CANCER METASTATIC
     Dosage: 5 MG, QD
     Route: 048
     Dates: start: 20100124
  6. FASLODEX [Concomitant]
     Active Substance: FULVESTRANT
     Indication: PRODUCT USED FOR UNKNOWN INDICATION
     Dosage: UNK UKN, UNK
     Route: 065
  7. ADVIL [Concomitant]
     Active Substance: IBUPROFEN
     Indication: PRODUCT USED FOR UNKNOWN INDICATION
     Dosage: UNK UKN, UNK
     Route: 065
  8. ZOMETA [Suspect]
     Active Substance: ZOLEDRONIC ACID
     Dosage: 4 MG, EVERY 12 WEEKS
     Route: 042
  9. PAMIDRONATE [Suspect]
     Active Substance: PAMIDRONATE DISODIUM
     Indication: BREAST CANCER METASTATIC
     Dosage: UNK
     Route: 042
     Dates: end: 20080208
  10. ZOMETA [Suspect]
     Active Substance: ZOLEDRONIC ACID
     Dosage: 4 MG, EVERY 12 WEEKS
     Route: 065
     Dates: start: 20141021
  11. CAPECITABINE. [Suspect]
     Active Substance: CAPECITABINE
     Indication: PRODUCT USED FOR UNKNOWN INDICATION
     Dosage: UNK
     Route: 065
  12. ZOLEDRONATE [Suspect]
     Active Substance: ZOLEDRONIC ACID
     Indication: PRODUCT USED FOR UNKNOWN INDICATION
     Dosage: UNK
     Route: 065
  13. ZOMETA [Suspect]
     Active Substance: ZOLEDRONIC ACID
     Dosage: 4 MG, EVERY 8 WEEKS
     Route: 042
  14. ZOMETA [Suspect]
     Active Substance: ZOLEDRONIC ACID
     Dosage: 4 MG, EVERY 12 WEEKS
     Route: 042
  15. RANITIDINE. [Concomitant]
     Active Substance: RANITIDINE
     Indication: PRODUCT USED FOR UNKNOWN INDICATION
     Dosage: UNK UKN, UNK
     Route: 065
  16. NACL [Concomitant]
     Active Substance: SODIUM CHLORIDE
     Indication: PRODUCT USED FOR UNKNOWN INDICATION
     Route: 065

REACTIONS (65)
  - Gamma-glutamyltransferase decreased [Unknown]
  - Body temperature decreased [Recovered/Resolved]
  - Impaired healing [Unknown]
  - White blood cell count decreased [Not Recovered/Not Resolved]
  - Arthralgia [Unknown]
  - Contusion [Unknown]
  - Drug ineffective [Unknown]
  - Abdominal distension [Recovered/Resolved]
  - Gastritis [Unknown]
  - Immunodeficiency [Unknown]
  - Chills [Unknown]
  - Injection site erythema [Unknown]
  - Neutrophil count decreased [Unknown]
  - Nausea [Unknown]
  - Feeling hot [Unknown]
  - Blood cholesterol increased [Unknown]
  - Dehydration [Unknown]
  - Malaise [Unknown]
  - Pain in jaw [Unknown]
  - Pain in extremity [Recovering/Resolving]
  - Headache [Unknown]
  - Muscle spasms [Unknown]
  - Infusion site haemorrhage [Unknown]
  - Vein disorder [Unknown]
  - Hepatic function abnormal [Unknown]
  - Abdominal discomfort [Unknown]
  - Mean cell haemoglobin decreased [Unknown]
  - Toothache [Recovered/Resolved]
  - Migraine [Unknown]
  - Injection site bruising [Unknown]
  - Paraesthesia [Unknown]
  - Pain [Unknown]
  - Influenza like illness [Unknown]
  - Back pain [Recovered/Resolved]
  - Abdominal pain upper [Recovered/Resolved]
  - Platelet count decreased [Unknown]
  - Retinal detachment [Unknown]
  - Poor venous access [Unknown]
  - Injection site swelling [Unknown]
  - Asthenia [Recovering/Resolving]
  - Oedema peripheral [Unknown]
  - Flushing [Unknown]
  - Injection site mass [Unknown]
  - Post-traumatic neck syndrome [Unknown]
  - Incontinence [Unknown]
  - Feeling cold [Unknown]
  - Blood creatinine decreased [Unknown]
  - Infusion site coldness [Unknown]
  - Bone pain [Unknown]
  - Infusion site induration [Unknown]
  - Decreased appetite [Unknown]
  - Road traffic accident [Recovered/Resolved]
  - Blood pressure decreased [Unknown]
  - Feeling cold [Recovered/Resolved]
  - Peripheral coldness [Unknown]
  - Spinal pain [Unknown]
  - Abdominal distension [Unknown]
  - Dizziness [Unknown]
  - Blood potassium increased [Unknown]
  - Anxiety [Unknown]
  - Urticaria [Unknown]
  - Drug hypersensitivity [Unknown]
  - Fatigue [Unknown]
  - Chest pain [Unknown]
  - Vasodilatation [Unknown]

NARRATIVE: CASE EVENT DATE: 20100601
